FAERS Safety Report 5386218-2 (Version None)
Quarter: 2007Q3

REPORT INFORMATION
  Report Type: 
  Country: None (occurrence: None)
  Receive Date: 20070713
  Receipt Date: 20070704
  Transmission Date: 20080115
  Serious: Yes (Hospitalization)
  Sender: FDA-Public Use
  Company Number: PHBS2007JP11510

PATIENT
  Age: 84 Year
  Sex: Male

DRUGS (4)
  1. DIOVAN [Suspect]
     Indication: HYPERTENSION
     Dosage: 40 MG, BID
     Route: 048
     Dates: start: 20061107, end: 20070703
  2. TICLOPIDINE HCL [Suspect]
     Dates: end: 20070703
  3. MELBIN [Suspect]
     Dates: end: 20070703
  4. AMARYL [Suspect]
     Dates: end: 20070703

REACTIONS (1)
  - HEPATIC FUNCTION ABNORMAL [None]
